FAERS Safety Report 25515370 (Version 6)
Quarter: 2025Q4

REPORT INFORMATION
  Report Type: Report from Study
  Country: CN (occurrence: CN)
  Receive Date: 20250704
  Receipt Date: 20251230
  Transmission Date: 20260118
  Serious: Yes (Hospitalization, Other)
  Sender: AMGEN
  Company Number: CN-AMGEN-CHNNI2024245241

PATIENT
  Age: 77 Year
  Sex: Male
  Weight: 77 kg

DRUGS (14)
  1. DENOSUMAB [Suspect]
     Active Substance: DENOSUMAB
     Indication: Bone cancer metastatic
     Dosage: 120 MILLIGRAM, Q4WK
     Route: 058
     Dates: start: 20241121
  2. PACLITAXEL [Concomitant]
     Active Substance: PACLITAXEL
     Dosage: 300 MILLIGRAM
     Route: 040
     Dates: start: 20241025, end: 20250218
  3. FUROSEMIDE [Concomitant]
     Active Substance: FUROSEMIDE
     Dosage: 20 MILLIGRAM
     Route: 048
     Dates: start: 20241028, end: 202411
  4. SPIRONOLACTONE [Concomitant]
     Active Substance: SPIRONOLACTONE
     Dosage: 40 MILLIGRAM
     Route: 048
     Dates: start: 20241028, end: 202411
  5. CAMRELIZUMAB [Concomitant]
     Active Substance: CAMRELIZUMAB
     Dosage: 200 MILLIGRAM
     Route: 042
     Dates: start: 20241116, end: 20250218
  6. CARBOPLATIN [Concomitant]
     Active Substance: CARBOPLATIN
     Dosage: 0.4 GRAM
     Route: 042
     Dates: start: 20241025, end: 20250218
  7. Human interleukin-11 [Concomitant]
     Dosage: 8000000 UNK
     Route: 058
     Dates: start: 20241120
  8. MEGESTROL ACETATE [Concomitant]
     Active Substance: MEGESTROL ACETATE
     Dosage: 0.16 GRAM
     Route: 048
     Dates: start: 20241120, end: 202412
  9. INSULIN NOS [Concomitant]
     Active Substance: INSULIN NOS
     Dosage: 20 MILLIGRAM
     Route: 042
     Dates: start: 20241220, end: 20241225
  10. Yang zheng [Concomitant]
     Dosage: 20 MILLILITER
     Route: 048
     Dates: start: 20241118, end: 20241225
  11. DISODIUM CANTHARIDINATE;PYRIDOXINE [Concomitant]
     Dosage: 0.2-0.3 GRAM
     Route: 040
     Dates: start: 20241118, end: 20241225
  12. CANTHARIDES [Concomitant]
     Active Substance: HOMEOPATHICS\LYTTA VESICATORIA
     Dosage: 0.75 GRAM
     Route: 048
     Dates: start: 20241121, end: 202412
  13. THYMOPOLYPEPTIDES [Concomitant]
     Dosage: 15 MILLIGRAM
     Route: 048
     Dates: start: 20241121, end: 202411
  14. METHOXYPHENAMINE [Concomitant]
     Active Substance: METHOXYPHENAMINE
     Dosage: 2 UNK
     Route: 048
     Dates: start: 20241207, end: 20241207

REACTIONS (6)
  - Pathological fracture [Not Recovered/Not Resolved]
  - Pathological fracture [Recovered/Resolved]
  - Pneumonia [Recovered/Resolved]
  - Hypocalcaemia [Recovered/Resolved]
  - Osteoporosis [Not Recovered/Not Resolved]
  - Anaemia [Recovered/Resolved]

NARRATIVE: CASE EVENT DATE: 20241122
